FAERS Safety Report 6900989-2 (Version None)
Quarter: 2010Q3

REPORT INFORMATION
  Report Type: 
  Country: None (occurrence: None)
  Receive Date: 20100803
  Receipt Date: 20100727
  Transmission Date: 20110219
  Serious: Yes (Hospitalization, Disabling)
  Sender: FDA-Public Use
  Company Number: B0667754A

PATIENT
  Sex: Female
  Weight: 50 kg

DRUGS (24)
  1. ALKERAN [Suspect]
     Indication: CORD BLOOD TRANSPLANT THERAPY
     Dosage: 40MG PER DAY
     Route: 042
     Dates: start: 20050419, end: 20050420
  2. FLUDARA [Suspect]
     Indication: CORD BLOOD TRANSPLANT THERAPY
     Dosage: 25MG PER DAY
     Route: 042
     Dates: start: 20050414, end: 20050418
  3. PROGRAF [Suspect]
     Indication: IMMUNOSUPPRESSION
     Dosage: .8MG PER DAY
     Route: 065
     Dates: start: 20050421, end: 20050508
  4. MAXIPIME [Suspect]
     Dosage: 4G PER DAY
     Route: 042
     Dates: start: 20050427, end: 20050516
  5. VICCLOX [Suspect]
     Dosage: 750MG PER DAY
     Route: 042
     Dates: start: 20050502, end: 20050514
  6. GANCICLOVIR [Suspect]
     Dosage: 250MG PER DAY
     Dates: start: 20050527, end: 20050616
  7. PHENYTOIN SODIUM [Suspect]
     Dosage: 250MG PER DAY
     Route: 042
     Dates: start: 20050508, end: 20050511
  8. DIFLUCAN [Suspect]
     Dosage: 200MG PER DAY
     Route: 048
     Dates: start: 20050414, end: 20050507
  9. GASTER [Suspect]
     Dosage: 40MG PER DAY
     Route: 048
     Dates: start: 20050414, end: 20050507
  10. GRAN [Concomitant]
     Dates: start: 20050423, end: 20050621
  11. CYCLOSPORINE [Concomitant]
     Indication: IMMUNOSUPPRESSION
     Dosage: 120MG PER DAY
     Route: 065
     Dates: start: 20050607, end: 20050723
  12. PREDONINE [Concomitant]
     Dosage: 60MG PER DAY
     Dates: start: 20050513, end: 20050713
  13. PREDONINE [Concomitant]
     Dosage: 50MG PER DAY
     Dates: start: 20050714, end: 20050728
  14. PREDONINE [Concomitant]
     Dosage: 40MG PER DAY
     Dates: start: 20050729, end: 20050811
  15. PREDONINE [Concomitant]
     Dosage: 30MG PER DAY
     Dates: start: 20050812, end: 20050908
  16. PREDONINE [Concomitant]
     Dosage: 20MG PER DAY
     Dates: start: 20050909, end: 20050922
  17. PREDONINE [Concomitant]
     Dosage: 15MG PER DAY
     Dates: start: 20050923, end: 20060423
  18. PREDONINE [Concomitant]
     Dosage: 10MG PER DAY
     Dates: start: 20060424, end: 20060618
  19. PREDONINE [Concomitant]
     Dosage: 5MG PER DAY
     Dates: start: 20060619
  20. PRODIF [Concomitant]
     Dosage: 400MG PER DAY
     Route: 042
     Dates: start: 20050514, end: 20050516
  21. FULCALIQ [Concomitant]
     Dosage: 1103ML PER DAY
     Route: 042
     Dates: start: 20050501, end: 20050713
  22. COTRIM [Concomitant]
     Dosage: 4IUAX PER DAY
     Route: 048
     Dates: start: 20050412, end: 20050420
  23. CIPROFLOXACIN HCL [Concomitant]
     Dosage: 600MG PER DAY
     Route: 048
     Dates: start: 20050414, end: 20050507
  24. UNKNOWN DRUG [Concomitant]
     Dosage: 1.25G PER DAY
     Route: 048
     Dates: start: 20050417, end: 20050501

REACTIONS (6)
  - ALANINE AMINOTRANSFERASE INCREASED [None]
  - ASPARTATE AMINOTRANSFERASE INCREASED [None]
  - CONVULSION [None]
  - ENCEPHALITIS VIRAL [None]
  - FEBRILE NEUTROPENIA [None]
  - LIVER DISORDER [None]
